FAERS Safety Report 24583596 (Version 1)
Quarter: 2024Q4

REPORT INFORMATION
  Report Type: Report from Study
  Country: DE (occurrence: DE)
  Receive Date: 20241106
  Receipt Date: 20241106
  Transmission Date: 20250114
  Serious: Yes (Hospitalization, Other)
  Sender: ABBVIE
  Company Number: DE-ABBVIE-5801076

PATIENT
  Age: 73 Year
  Sex: Female

DRUGS (3)
  1. FOSCARBIDOPA\FOSLEVODOPA [Suspect]
     Active Substance: FOSCARBIDOPA\FOSLEVODOPA
     Indication: Parkinson^s disease
     Dosage: CR 0.25 ML/H, CRN 0.21 ML/H?STOP DATE: 2024
     Route: 058
     Dates: start: 20240502
  2. FOSCARBIDOPA\FOSLEVODOPA [Suspect]
     Active Substance: FOSCARBIDOPA\FOSLEVODOPA
     Dosage: CRN: 0.25 ML/H CR: 0.36 ML/H CRH: 0.38 ML/H?START DATE: 2024?STOP DATE: 2024
     Route: 058
  3. FOSCARBIDOPA\FOSLEVODOPA [Suspect]
     Active Substance: FOSCARBIDOPA\FOSLEVODOPA
     Dosage: CRN: 0.24 ML/H CR: 0.34 ML/H CRH: 0.38 ML/H ED: 0.15 ML?START DATE: 2024
     Route: 058

REACTIONS (7)
  - Schizophrenia [Recovered/Resolved]
  - Overdose [Recovered/Resolved]
  - Suicidal ideation [Recovered/Resolved]
  - On and off phenomenon [Not Recovered/Not Resolved]
  - Hallucination, auditory [Recovered/Resolved]
  - Hallucination, visual [Recovering/Resolving]
  - Seizure [Recovered/Resolved]

NARRATIVE: CASE EVENT DATE: 20240101
